FAERS Safety Report 25485138 (Version 1)
Quarter: 2025Q2

REPORT INFORMATION
  Report Type: Spontaneous
  Country: ES (occurrence: ES)
  Receive Date: 20250626
  Receipt Date: 20250626
  Transmission Date: 20250717
  Serious: Yes (Other)
  Sender: MYLAN
  Company Number: ES-MYLANLABS-2025M1053741

PATIENT
  Sex: Female

DRUGS (20)
  1. DOCETAXEL [Suspect]
     Active Substance: DOCETAXEL
     Indication: Lung adenocarcinoma stage IV
  2. DOCETAXEL [Suspect]
     Active Substance: DOCETAXEL
     Indication: Metastases to pleura
     Route: 065
  3. DOCETAXEL [Suspect]
     Active Substance: DOCETAXEL
     Route: 065
  4. DOCETAXEL [Suspect]
     Active Substance: DOCETAXEL
  5. CISPLATIN [Suspect]
     Active Substance: CISPLATIN
     Indication: Lung adenocarcinoma stage IV
  6. CISPLATIN [Suspect]
     Active Substance: CISPLATIN
     Indication: Metastases to pleura
     Route: 065
  7. CISPLATIN [Suspect]
     Active Substance: CISPLATIN
     Route: 065
  8. CISPLATIN [Suspect]
     Active Substance: CISPLATIN
  9. PEMETREXED [Suspect]
     Active Substance: PEMETREXED
     Indication: Lung adenocarcinoma stage IV
  10. PEMETREXED [Suspect]
     Active Substance: PEMETREXED
     Indication: Metastases to pleura
     Route: 065
  11. PEMETREXED [Suspect]
     Active Substance: PEMETREXED
     Route: 065
  12. PEMETREXED [Suspect]
     Active Substance: PEMETREXED
  13. NINTEDANIB [Suspect]
     Active Substance: NINTEDANIB
     Indication: Lung adenocarcinoma stage IV
  14. NINTEDANIB [Suspect]
     Active Substance: NINTEDANIB
     Indication: Metastases to pleura
     Route: 065
  15. NINTEDANIB [Suspect]
     Active Substance: NINTEDANIB
     Route: 065
  16. NINTEDANIB [Suspect]
     Active Substance: NINTEDANIB
  17. GLATIRAMER ACETATE [Concomitant]
     Active Substance: GLATIRAMER ACETATE
     Indication: Relapsing-remitting multiple sclerosis
  18. GLATIRAMER ACETATE [Concomitant]
     Active Substance: GLATIRAMER ACETATE
     Route: 065
  19. GLATIRAMER ACETATE [Concomitant]
     Active Substance: GLATIRAMER ACETATE
     Route: 065
  20. GLATIRAMER ACETATE [Concomitant]
     Active Substance: GLATIRAMER ACETATE

REACTIONS (2)
  - Drug ineffective [Unknown]
  - Disease progression [Unknown]
